FAERS Safety Report 6453197-6 (Version None)
Quarter: 2009Q4

REPORT INFORMATION
  Report Type: 
  Country: None (occurrence: None)
  Receive Date: 20091124
  Receipt Date: 20091119
  Transmission Date: 20100525
  Serious: Yes (Hospitalization)
  Sender: FDA-Public Use
  Company Number: IT-BRISTOL-MYERS SQUIBB COMPANY-14865869

PATIENT
  Age: 75 Year
  Sex: Male

DRUGS (1)
  1. BARACLUDE [Suspect]

REACTIONS (3)
  - FALL [None]
  - RIB FRACTURE [None]
  - SOMNOLENCE [None]
